FAERS Safety Report 15340600 (Version 2)
Quarter: 2018Q4

REPORT INFORMATION
  Report Type: Report from Study
  Country: CO (occurrence: CO)
  Receive Date: 20180831
  Receipt Date: 20181205
  Transmission Date: 20190204
  Serious: Yes (Hospitalization)
  Sender: FDA-Public Use
  Company Number: CO-ACTELION-A-US2018-178218

PATIENT
  Sex: Female

DRUGS (2)
  1. BOSENTAN. [Concomitant]
     Active Substance: BOSENTAN
     Indication: PRODUCT USED FOR UNKNOWN INDICATION
  2. VENTAVIS [Suspect]
     Active Substance: ILOPROST
     Indication: PULMONARY HYPERTENSION
     Dosage: 1DF, 6ID
     Route: 055
     Dates: start: 20180728

REACTIONS (3)
  - Oropharyngeal pain [Unknown]
  - Hospitalisation [Recovered/Resolved]
  - Cough [Unknown]
